FAERS Safety Report 8328758-X (Version None)
Quarter: 2012Q2

REPORT INFORMATION
  Report Type: 
  Country: None (occurrence: None)
  Receive Date: 20120502
  Receipt Date: 20120423
  Transmission Date: 20120825
  Serious: Yes (Other)
  Sender: FDA-Public Use
  Company Number: GB-SANOFI-AVENTIS-2012SA028236

PATIENT
  Sex: Female

DRUGS (1)
  1. PLAQUENIL [Suspect]
     Route: 065

REACTIONS (1)
  - ABORTION INDUCED [None]
